FAERS Safety Report 8122441-1 (Version None)
Quarter: 2012Q1

REPORT INFORMATION
  Report Type: 
  Country: None (occurrence: None)
  Receive Date: 20120206
  Receipt Date: 20120123
  Transmission Date: 20120608
  Serious: Yes (Death)
  Sender: FDA-Public Use
  Company Number: JPI-P-010508

PATIENT
  Age: 79 Year
  Sex: Male

DRUGS (4)
  1. XYREM [Suspect]
     Indication: NARCOLEPSY
     Dosage: 9 GM (4.5 GM, 2 IN 1 D), ORAL; 8 GM (4 GM, 2 IN 1 D), ORAL
     Route: 048
     Dates: start: 20021002
  2. XYREM [Suspect]
     Indication: CATAPLEXY
     Dosage: 9 GM (4.5 GM, 2 IN 1 D), ORAL; 8 GM (4 GM, 2 IN 1 D), ORAL
     Route: 048
     Dates: start: 20021002
  3. XYREM [Suspect]
     Indication: NARCOLEPSY
     Dosage: 9 GM (4.5 GM, 2 IN 1 D), ORAL; 8 GM (4 GM, 2 IN 1 D), ORAL
     Route: 048
     Dates: end: 20100404
  4. XYREM [Suspect]
     Indication: CATAPLEXY
     Dosage: 9 GM (4.5 GM, 2 IN 1 D), ORAL; 8 GM (4 GM, 2 IN 1 D), ORAL
     Route: 048
     Dates: end: 20100404

REACTIONS (4)
  - RENAL FAILURE ACUTE [None]
  - MYOCARDIAL ISCHAEMIA [None]
  - CARDIAC ARREST [None]
  - CARDIAC FAILURE CONGESTIVE [None]
